FAERS Safety Report 20808332 (Version 1)
Quarter: 2022Q2

REPORT INFORMATION
  Report Type: Spontaneous
  Country: US (occurrence: None)
  Receive Date: 20220509
  Receipt Date: 20220509
  Transmission Date: 20220721
  Serious: No
  Sender: FDA-Public Use
  Company Number: None

PATIENT
  Age: 65 Year
  Sex: Male
  Weight: 108 kg

DRUGS (1)
  1. CLARITHROMYCIN [Suspect]
     Active Substance: CLARITHROMYCIN
     Indication: Drug interaction
     Dosage: FREQUENCY : TWICE A DAY;?
     Route: 048
     Dates: start: 20220114, end: 20220114

REACTIONS (2)
  - Mental status changes [None]
  - Drug interaction [None]

NARRATIVE: CASE EVENT DATE: 20220119
